FAERS Safety Report 24202428 (Version 2)
Quarter: 2024Q3

REPORT INFORMATION
  Report Type: Spontaneous
  Country: JP (occurrence: JP)
  Receive Date: 20240813
  Receipt Date: 20240924
  Transmission Date: 20241017
  Serious: Yes (Hospitalization, Other)
  Sender: SANDOZ
  Company Number: JP-SANDOZ INC.-SDZ2024JP071077

PATIENT
  Age: 22 Month
  Sex: Male

DRUGS (1)
  1. EPINEPHRINE\LIDOCAINE HYDROCHLORIDE [Suspect]
     Active Substance: EPINEPHRINE\LIDOCAINE HYDROCHLORIDE
     Indication: Local anaesthesia
     Dosage: 5 ML
     Route: 058

REACTIONS (3)
  - Stress cardiomyopathy [Recovering/Resolving]
  - Pulmonary oedema [Unknown]
  - Product use issue [Unknown]
